FAERS Safety Report 10440149 (Version 2)
Quarter: 2014Q3

REPORT INFORMATION
  Report Type: Spontaneous
  Country: US (occurrence: US)
  Receive Date: 20140908
  Receipt Date: 20140908
  Transmission Date: 20150326
  Serious: No
  Sender: FDA-Public Use
  Company Number: US-BRISTOL-MYERS SQUIBB COMPANY-19433762

PATIENT
  Age: 37 Year
  Sex: Female
  Weight: 86.62 kg

DRUGS (7)
  1. CHANTIX [Concomitant]
     Active Substance: VARENICLINE TARTRATE
     Dates: start: 2013, end: 20130617
  2. PROZAC [Concomitant]
     Active Substance: FLUOXETINE HYDROCHLORIDE
  3. PRAZOSIN [Concomitant]
     Active Substance: PRAZOSIN
  4. SONATA [Concomitant]
     Active Substance: ZALEPLON
  5. ABILIFY MAINTENA [Suspect]
     Active Substance: ARIPIPRAZOLE
     Indication: SCHIZOAFFECTIVE DISORDER
     Dosage: 16JUL2013
     Route: 030
     Dates: start: 20130422, end: 20130812
  6. CLONAZEPAM. [Concomitant]
     Active Substance: CLONAZEPAM
  7. ABILIFY [Suspect]
     Active Substance: ARIPIPRAZOLE
     Dosage: 17-JUN-2013 AND 15-JUL-2013.
     Route: 048
     Dates: start: 20130812

REACTIONS (2)
  - Weight increased [Unknown]
  - Off label use [Unknown]

NARRATIVE: CASE EVENT DATE: 20130617
